FAERS Safety Report 5690016-X (Version None)
Quarter: 2008Q2

REPORT INFORMATION
  Report Type: 
  Country: None (occurrence: None)
  Receive Date: 20080401
  Receipt Date: 20080319
  Transmission Date: 20081010
  Serious: Yes (Hospitalization, Other)
  Sender: FDA-Public Use
  Company Number: JP-ELI_LILLY_AND_COMPANY-JP200803002735

PATIENT
  Age: 35 Year
  Sex: Female
  Weight: 42 kg

DRUGS (6)
  1. OLANZAPINE [Suspect]
     Dosage: 3 MG, DAILY (1/D)
     Route: 048
     Dates: end: 20080305
  2. PAXIL [Concomitant]
     Indication: DEPRESSION
     Dosage: 20 MG, DAILY (1/D)
     Route: 048
     Dates: end: 20080305
  3. CRESTOR [Concomitant]
     Indication: HYPERLIPIDAEMIA
     Dosage: 2.5 MG, DAILY (1/D)
     Route: 048
     Dates: start: 20080128, end: 20080305
  4. DORAL [Concomitant]
     Indication: INSOMNIA
     Dosage: 15 MG, DAILY (1/D)
     Route: 048
     Dates: start: 20080203
  5. SILECE [Concomitant]
     Indication: INSOMNIA
     Dosage: 2 MG, DAILY (1/D)
     Route: 048
     Dates: start: 20071115
  6. MYSLEE [Concomitant]
     Indication: INSOMNIA
     Dosage: 10 MG, DAILY (1/D)
     Route: 048
     Dates: start: 20070905

REACTIONS (6)
  - ANOREXIA NERVOSA [None]
  - BLOOD CREATINE PHOSPHOKINASE INCREASED [None]
  - CHROMATURIA [None]
  - HYPERLIPIDAEMIA [None]
  - MYOGLOBIN BLOOD INCREASED [None]
  - MYOGLOBIN URINE PRESENT [None]
